FAERS Safety Report 7795377-3 (Version None)
Quarter: 2011Q4

REPORT INFORMATION
  Report Type: 
  Country: None (occurrence: None)
  Receive Date: 20111004
  Receipt Date: 20110923
  Transmission Date: 20120403
  Serious: Yes (Hospitalization)
  Sender: FDA-Public Use
  Company Number: US-JNJFOC-20110410560

PATIENT
  Sex: Male
  Weight: 44.2 kg

DRUGS (13)
  1. INFLIXIMAB, RECOMBINANT [Suspect]
     Route: 042
     Dates: start: 20050728, end: 20060609
  2. MESALAMINE [Concomitant]
     Indication: INFLAMMATORY BOWEL DISEASE
     Route: 048
  3. IRON [Concomitant]
  4. INFLIXIMAB, RECOMBINANT [Suspect]
     Route: 042
     Dates: start: 20091020
  5. AZATHIOPRINE [Concomitant]
     Indication: INFLAMMATORY BOWEL DISEASE
  6. VITAMIN TAB [Concomitant]
  7. HUMIRA [Concomitant]
  8. ANTIBIOTICS [Concomitant]
  9. INFLIXIMAB, RECOMBINANT [Suspect]
     Indication: CROHN'S DISEASE
     Route: 042
     Dates: end: 20110624
  10. INFLIXIMAB, RECOMBINANT [Suspect]
     Route: 042
     Dates: start: 20091006
  11. PERIACTIN [Concomitant]
  12. INFLIXIMAB, RECOMBINANT [Suspect]
     Route: 042
     Dates: start: 20110514
  13. INFLIXIMAB, RECOMBINANT [Suspect]
     Route: 042
     Dates: start: 20091117

REACTIONS (1)
  - CROHN'S DISEASE [None]
